FAERS Safety Report 16744547 (Version 1)
Quarter: 2019Q3

REPORT INFORMATION
  Report Type: Spontaneous
  Country: US (occurrence: US)
  Receive Date: 20190827
  Receipt Date: 20190827
  Transmission Date: 20191005
  Serious: Yes (Hospitalization, Other)
  Sender: FDA-Public Use
  Company Number: US-AUROBINDO-AUR-APL-2019-056611

PATIENT

DRUGS (7)
  1. METHYLPREDNISOLONE. [Suspect]
     Active Substance: METHYLPREDNISOLONE
     Indication: IDIOPATHIC INTRACRANIAL HYPERTENSION
  2. ETHINYLESTRADIOL [Suspect]
     Active Substance: ETHINYL ESTRADIOL
     Indication: POLYCYSTIC OVARIES
     Dosage: 20 MILLIGRAM
     Route: 065
  3. ETHINYLESTRADIOL [Suspect]
     Active Substance: ETHINYL ESTRADIOL
     Indication: IDIOPATHIC INTRACRANIAL HYPERTENSION
  4. NORETHISTERONE [Suspect]
     Active Substance: NORETHINDRONE
     Indication: POLYCYSTIC OVARIES
     Dosage: 1 MILLIGRAM
     Route: 065
  5. METHYLPREDNISOLONE. [Suspect]
     Active Substance: METHYLPREDNISOLONE
     Indication: POLYCYSTIC OVARIES
     Dosage: 250 MILLIGRAM, FOUR TIMES/DAY
     Route: 042
  6. NORETHISTERONE [Suspect]
     Active Substance: NORETHINDRONE
     Indication: IDIOPATHIC INTRACRANIAL HYPERTENSION
  7. ACETAZOLAMIDE. [Concomitant]
     Active Substance: ACETAZOLAMIDE
     Indication: PRODUCT USED FOR UNKNOWN INDICATION
     Dosage: 500 MILLIGRAM, TWO TIMES A DAY
     Route: 065

REACTIONS (19)
  - Subarachnoid haemorrhage [Unknown]
  - Eye oedema [Unknown]
  - Brain oedema [Unknown]
  - Lethargy [Unknown]
  - Cerebral thrombosis [Unknown]
  - Blindness [Unknown]
  - Nausea [Unknown]
  - Optic atrophy [Not Recovered/Not Resolved]
  - Headache [Recovered/Resolved]
  - Speech disorder [Unknown]
  - Diplopia [Unknown]
  - Papilloedema [Recovered/Resolved]
  - Cavernous sinus thrombosis [Unknown]
  - Dizziness [Unknown]
  - Intracranial pressure increased [Unknown]
  - Cerebrovascular accident [Unknown]
  - Tinnitus [Unknown]
  - Vomiting [Unknown]
  - Hypoaesthesia [Unknown]
